FAERS Safety Report 23938959 (Version 3)
Quarter: 2024Q2

REPORT INFORMATION
  Report Type: Spontaneous
  Country: US (occurrence: US)
  Receive Date: 20240604
  Receipt Date: 20240628
  Transmission Date: 20240715
  Serious: No
  Sender: FDA-Public Use
  Company Number: US-009507513-2405USA010091

PATIENT
  Sex: Male
  Weight: 100.7 kg

DRUGS (26)
  1. WINREVAIR [Suspect]
     Active Substance: SOTATERCEPT-CSRK
     Indication: Product used for unknown indication
     Dosage: UNK
     Dates: start: 2024
  2. REMODULIN [Suspect]
     Active Substance: TREPROSTINIL
     Indication: Pulmonary arterial hypertension
     Dosage: 0.035 MICROGRAM PER KILOGRAM, CONTINUING
     Route: 041
  3. REMODULIN [Suspect]
     Active Substance: TREPROSTINIL
     Dosage: UNK, CONTINUING
     Route: 041
     Dates: start: 20211214
  4. ATORVASTATIN CALCIUM [Concomitant]
     Active Substance: ATORVASTATIN CALCIUM
  5. METOPROLOL TARTRATE [Concomitant]
     Active Substance: METOPROLOL TARTRATE
  6. SILDENAFIL [Concomitant]
     Active Substance: SILDENAFIL
  7. RAMIPRIL [Concomitant]
     Active Substance: RAMIPRIL
  8. OXYCODONE HYDROCHLORIDE [Concomitant]
     Active Substance: OXYCODONE HYDROCHLORIDE
  9. POTASSIUM CHLORIDE [Concomitant]
     Active Substance: POTASSIUM CHLORIDE
  10. JARDIANCE [Concomitant]
     Active Substance: EMPAGLIFLOZIN
  11. PANTOPRAZOL SODICO SESQUIHIDRATADO [Concomitant]
  12. SERTRALINE HYDROCHLORIDE [Concomitant]
     Active Substance: SERTRALINE HYDROCHLORIDE
  13. AFRIN [Concomitant]
     Active Substance: OXYMETAZOLINE
  14. OPSUMIT [Concomitant]
     Active Substance: MACITENTAN
  15. SPIRONOLACTONE [Concomitant]
     Active Substance: SPIRONOLACTONE
  16. ALPRAZOLAM [Concomitant]
     Active Substance: ALPRAZOLAM
  17. OXYGEN [Concomitant]
     Active Substance: OXYGEN
  18. ASPIRIN [Concomitant]
     Active Substance: ASPIRIN
  19. PROAIR DIGIHALER [Concomitant]
     Active Substance: ALBUTEROL SULFATE
  20. ZINC [Concomitant]
     Active Substance: PYRITHIONE ZINC\ZINC\ZINC CHLORIDE
  21. FUROSEMIDE [Concomitant]
     Active Substance: FUROSEMIDE
  22. MODERNA COVID-19 VACCINE [Concomitant]
     Active Substance: ELASOMERAN
  23. JANUVIA [Concomitant]
     Active Substance: SITAGLIPTIN PHOSPHATE
  24. VITAMIN C [Concomitant]
     Active Substance: ASCORBIC ACID
  25. FISH OIL [Concomitant]
     Active Substance: FISH OIL
  26. LOPERAMIDE [Concomitant]
     Active Substance: LOPERAMIDE

REACTIONS (2)
  - Headache [Recovered/Resolved]
  - Gingival bleeding [Unknown]

NARRATIVE: CASE EVENT DATE: 20240101
